FAERS Safety Report 7068268 (Version 3)
Quarter: 2014Q1

REPORT INFORMATION
  Report Type: Spontaneous
  Country: US (occurrence: None)
  Receive Date: 20090724
  Receipt Date: 20140127
  Transmission Date: 20141002
  Serious: Yes (Hospitalization, Other)
  Sender: FDA-Public Use
  Company Number: 2009S1005573

PATIENT
  Age: 61 Year
  Sex: Female

DRUGS (1)
  1. PHOSPHO-SODA [Suspect]
     Indication: COLONOSCOPY
     Dosage: 2 IN 2H HRS.
     Route: 048
     Dates: start: 20040316, end: 20040316

REACTIONS (3)
  - Renal failure [None]
  - Haemodialysis [None]
  - Renal failure acute [None]
